FAERS Safety Report 15146661 (Version 1)
Quarter: 2018Q3

REPORT INFORMATION
  Report Type: Spontaneous
  Country: FR (occurrence: FR)
  Receive Date: 20180715
  Receipt Date: 20180715
  Transmission Date: 20181010
  Serious: Yes (Other)
  Sender: FDA-Public Use
  Company Number: FR-ROCHE-2155082

PATIENT
  Age: 56 Year
  Sex: Male

DRUGS (1)
  1. AVASTIN [Suspect]
     Active Substance: BEVACIZUMAB
     Indication: METASTATIC BRONCHIAL CARCINOMA
     Route: 065

REACTIONS (2)
  - Facial paralysis [Not Recovered/Not Resolved]
  - Balance disorder [Not Recovered/Not Resolved]
